FAERS Safety Report 15656078 (Version 3)
Quarter: 2018Q4

REPORT INFORMATION
  Report Type: Spontaneous
  Country: US (occurrence: US)
  Receive Date: 20181126
  Receipt Date: 20181221
  Transmission Date: 20190205
  Serious: Yes (Life-Threatening)
  Sender: FDA-Public Use
  Company Number: US-009507513-1811USA007954

PATIENT
  Age: 29 Year
  Sex: Female

DRUGS (3)
  1. NEXPLANON [Suspect]
     Active Substance: ETONOGESTREL
     Indication: CONTRACEPTION
     Dosage: 1 ROD, EVERY 3 YEARS
     Route: 059
     Dates: end: 20180601
  2. NEXPLANON [Suspect]
     Active Substance: ETONOGESTREL
     Dosage: 1 ROD, EVERY 3 YEARS
     Route: 059
     Dates: start: 20180601, end: 20180605
  3. NEXPLANON [Suspect]
     Active Substance: ETONOGESTREL
     Dosage: 1 ROD, EVERY 3 YEARS
     Route: 059
     Dates: start: 20180605

REACTIONS (3)
  - Hypoaesthesia [Recovered/Resolved]
  - Paraesthesia [Recovered/Resolved]
  - Hypokinesia [Recovered/Resolved]

NARRATIVE: CASE EVENT DATE: 20180604
